FAERS Safety Report 8803110 (Version 3)
Quarter: 2013Q1

REPORT INFORMATION
  Report Type: Spontaneous
  Country: JP (occurrence: JP)
  Receive Date: 20120924
  Receipt Date: 20130102
  Transmission Date: 20140127
  Serious: Yes (Other)
  Sender: FDA-Public Use
  Company Number: JP-PFIZER INC-2012232696

PATIENT
  Age: 83 Year
  Sex: Male
  Weight: 52 kg

DRUGS (9)
  1. LYRICA [Suspect]
     Indication: ANALGESIC THERAPY
     Dosage: 75 MG, 1X/DAY
     Route: 048
     Dates: start: 20120705, end: 20120718
  2. LYRICA [Suspect]
     Dosage: 50 MG, 3X/DAY
     Route: 048
     Dates: start: 20120719, end: 20120906
  3. DIOVAN [Suspect]
     Indication: HYPERTENSION
     Dosage: 80 MG, 1X/DAY
     Route: 048
     Dates: start: 20120326
  4. MEVALOTIN [Suspect]
     Indication: DYSLIPIDAEMIA
     Dosage: 10 MG, 1X/DAY
     Route: 048
     Dates: start: 20120326
  5. L-CARTIN [Suspect]
     Indication: ANALGESIC THERAPY
     Dosage: 600 MG, 3X/DAY
     Route: 048
     Dates: start: 20120719, end: 20120906
  6. L-CARTIN [Suspect]
     Indication: GAIT DISTURBANCE
  7. NORVASC [Concomitant]
     Indication: HYPERTENSION
     Dosage: 5 MG, 1X/DAY
     Route: 048
     Dates: start: 20120422
  8. MOHRUS [Concomitant]
     Indication: ANALGESIC THERAPY
     Dosage: 40 MG, 1X/DAY
     Route: 062
     Dates: start: 20120405
  9. CYANOCOBALAMIN [Concomitant]

REACTIONS (7)
  - Liver disorder [Recovered/Resolved]
  - Eye irritation [Recovered/Resolved]
  - Visual acuity reduced [Recovered/Resolved]
  - Vision blurred [Recovered/Resolved]
  - Haematochezia [Recovered/Resolved]
  - Feeling hot [Unknown]
  - Fatigue [Unknown]
